FAERS Safety Report 8179366-5 (Version None)
Quarter: 2012Q1

REPORT INFORMATION
  Report Type: 
  Country: None (occurrence: None)
  Receive Date: 20120302
  Receipt Date: 20120223
  Transmission Date: 20120608
  Serious: Yes (Other)
  Sender: FDA-Public Use
  Company Number: US-BAYER-2011-020148

PATIENT
  Age: 20 Year
  Sex: Female
  Weight: 165.8 kg

DRUGS (2)
  1. YAZ [Suspect]
     Indication: PREMENSTRUAL SYNDROME
     Dosage: UNK
     Dates: start: 20090101
  2. YAZ [Suspect]

REACTIONS (5)
  - THROMBOSIS [None]
  - PAIN [None]
  - MENORRHAGIA [None]
  - MENTAL DISORDER [None]
  - INJURY [None]
